FAERS Safety Report 12856645 (Version 1)
Quarter: 2016Q4

REPORT INFORMATION
  Report Type: Spontaneous
  Country: IT (occurrence: IT)
  Receive Date: 20161018
  Receipt Date: 20161018
  Transmission Date: 20170207
  Serious: Yes (Other)
  Sender: FDA-Public Use
  Company Number: IT-SUN PHARMACEUTICAL INDUSTRIES LTD-2016RR-126235

PATIENT
  Sex: Male

DRUGS (6)
  1. DEPAKENE [Concomitant]
     Active Substance: VALPROIC ACID
     Indication: ANXIETY
     Dosage: 0.5 DF
     Route: 048
     Dates: start: 20160802, end: 20160816
  2. PERPHENAZINE. [Concomitant]
     Active Substance: PERPHENAZINE
     Indication: PRODUCT USED FOR UNKNOWN INDICATION
     Route: 065
  3. RIVOTRIL [Concomitant]
     Active Substance: CLONAZEPAM
     Indication: PRODUCT USED FOR UNKNOWN INDICATION
     Route: 065
  4. MUTABON [Concomitant]
     Active Substance: AMITRIPTYLINE HYDROCHLORIDE\PERPHENAZINE
     Indication: PRODUCT USED FOR UNKNOWN INDICATION
     Route: 065
  5. OLANZAPINE. [Suspect]
     Active Substance: OLANZAPINE
     Indication: PRODUCT USED FOR UNKNOWN INDICATION
     Dosage: 20 MG DAILY
     Route: 065
     Dates: start: 20160623, end: 20160802
  6. RISPERIDONE. [Concomitant]
     Active Substance: RISPERIDONE
     Indication: PRODUCT USED FOR UNKNOWN INDICATION
     Route: 065

REACTIONS (3)
  - Akathisia [Recovering/Resolving]
  - Insomnia [Recovering/Resolving]
  - Dysstasia [Recovering/Resolving]
